FAERS Safety Report 24985837 (Version 1)
Quarter: 2025Q1

REPORT INFORMATION
  Report Type: Report from Study
  Country: BR (occurrence: BR)
  Receive Date: 20250219
  Receipt Date: 20250219
  Transmission Date: 20250408
  Serious: Yes (Other)
  Sender: NOVARTIS
  Company Number: BR-002147023-NVSC2024BR077426

PATIENT
  Age: 61 Year
  Sex: Female
  Weight: 62 kg

DRUGS (9)
  1. KISQALI [Suspect]
     Active Substance: RIBOCICLIB
     Indication: Breast cancer
     Dosage: 3 DOSAGE FORM, QD
     Route: 065
  2. KISQALI [Suspect]
     Active Substance: RIBOCICLIB
     Route: 065
  3. KISQALI [Suspect]
     Active Substance: RIBOCICLIB
     Route: 065
     Dates: start: 20240422
  4. KISQALI [Suspect]
     Active Substance: RIBOCICLIB
     Dosage: 3 DOSAGE FORM, QD (FROM 17 JUN)
     Route: 065
  5. KISQALI [Suspect]
     Active Substance: RIBOCICLIB
     Route: 065
  6. KISQALI [Suspect]
     Active Substance: RIBOCICLIB
     Dosage: UNK, BID (FOR 21 DAYS - BREAK OF 7 DAYS) STARTED 1 YEAR AND  A HALF
     Route: 048
  7. GABAPENTIN [Concomitant]
     Active Substance: GABAPENTIN
     Indication: Anger
     Dosage: 2 DOSAGE FORM, QD (TABLET ? 400MG)
     Route: 048
     Dates: start: 2019
  8. EXEMESTANE [Concomitant]
     Active Substance: EXEMESTANE
     Indication: Neoplasm malignant
     Dosage: 1 DOSAGE FORM, QD (TABLET ? 25MG)
     Route: 048
  9. CODEINE [Concomitant]
     Active Substance: CODEINE
     Indication: Pain
     Dosage: 1 DOSAGE FORM, QD (TABLET ? 30MG )
     Route: 048

REACTIONS (29)
  - Peripheral coldness [Recovering/Resolving]
  - Alopecia [Not Recovered/Not Resolved]
  - Asthenia [Recovering/Resolving]
  - Headache [Recovering/Resolving]
  - Pain in extremity [Recovering/Resolving]
  - Abdominal pain [Recovering/Resolving]
  - Head discomfort [Recovering/Resolving]
  - Vision blurred [Recovering/Resolving]
  - Vein disorder [Not Recovered/Not Resolved]
  - Feeling cold [Recovering/Resolving]
  - Insomnia [Recovering/Resolving]
  - Dyspnoea [Recovering/Resolving]
  - Muscular weakness [Unknown]
  - Pigmentation disorder [Not Recovered/Not Resolved]
  - Fall [Unknown]
  - Dry skin [Not Recovered/Not Resolved]
  - Arthropathy [Unknown]
  - Confusional state [Unknown]
  - Memory impairment [Not Recovered/Not Resolved]
  - Onychoclasis [Not Recovered/Not Resolved]
  - Onychalgia [Recovered/Resolved]
  - Dilated pores [Unknown]
  - Ingrowing nail [Not Recovered/Not Resolved]
  - Back pain [Not Recovered/Not Resolved]
  - Chest pain [Unknown]
  - Limb discomfort [Recovering/Resolving]
  - Gait disturbance [Unknown]
  - Ill-defined disorder [Unknown]
  - Fear [Unknown]

NARRATIVE: CASE EVENT DATE: 20240401
